FAERS Safety Report 16064102 (Version 1)
Quarter: 2019Q1

REPORT INFORMATION
  Report Type: Spontaneous
  Country: IT (occurrence: IT)
  Receive Date: 20190312
  Receipt Date: 20190312
  Transmission Date: 20190418
  Serious: Yes (Other)
  Sender: FDA-Public Use
  Company Number: IT-PFIZER INC-2019106656

PATIENT
  Age: 59 Year
  Sex: Female

DRUGS (2)
  1. TOPAMAX [Concomitant]
     Active Substance: TOPIRAMATE
  2. SALAZOPYRIN EN [Suspect]
     Active Substance: SULFASALAZINE
     Indication: SPONDYLITIS
     Dosage: 500 MG, 1X/DAY
     Route: 048
     Dates: start: 20180706, end: 20190131

REACTIONS (1)
  - Gastrointestinal stromal tumour [Not Recovered/Not Resolved]

NARRATIVE: CASE EVENT DATE: 20190131
